FAERS Safety Report 24117261 (Version 1)
Quarter: 2024Q3

REPORT INFORMATION
  Report Type: Report from Study
  Country: JP (occurrence: JP)
  Receive Date: 20240722
  Receipt Date: 20240722
  Transmission Date: 20241017
  Serious: Yes (Hospitalization)
  Sender: ROCHE
  Company Number: JP-CHUGAI-2024024609

PATIENT
  Age: 82 Year

DRUGS (3)
  1. TECENTRIQ [Suspect]
     Active Substance: ATEZOLIZUMAB
     Indication: Hepatocellular carcinoma
     Dosage: 1200 (UNIT UNKNOWN)
     Route: 042
     Dates: start: 20230418
  2. AVASTIN [Suspect]
     Active Substance: BEVACIZUMAB
     Indication: Hepatocellular carcinoma
     Dosage: 800 (UNIT UNKNOWN)
     Route: 042
     Dates: start: 20230418
  3. AVASTIN [Suspect]
     Active Substance: BEVACIZUMAB
     Dosage: 650 (UNIT UNKNOWN)
     Route: 042
     Dates: start: 20230608

REACTIONS (3)
  - Dehydration [Recovered/Resolved]
  - Diarrhoea [Recovered/Resolved]
  - Infusion related reaction [Recovered/Resolved]

NARRATIVE: CASE EVENT DATE: 20230502
